FAERS Safety Report 10150932 (Version 1)
Quarter: 2014Q2

REPORT INFORMATION
  Report Type: Spontaneous
  Country: US (occurrence: US)
  Receive Date: 20140502
  Receipt Date: 20140502
  Transmission Date: 20141212
  Serious: Yes (Other)
  Sender: FDA-Public Use
  Company Number: US-BAXTER-2014BAX021196

PATIENT
  Age: 24 Year
  Sex: Female

DRUGS (8)
  1. GAMMAGARD S/D [Suspect]
     Indication: SKIN LESION
     Dosage: 1 G/KG
     Route: 042
  2. METHYLPREDNISOLONE [Suspect]
     Indication: SKIN LESION
     Route: 042
  3. METHYLPREDNISOLONE [Suspect]
     Route: 042
  4. DAPSONE [Suspect]
     Indication: SKIN LESION
     Route: 048
  5. PREDNISONE [Concomitant]
     Indication: IMMUNOSUPPRESSION
     Route: 048
  6. PREDNISONE [Concomitant]
     Route: 048
  7. MYCOPHENOLATE MOFETIL [Concomitant]
     Indication: IMMUNOSUPPRESSION
     Route: 065
  8. MYCOPHENOLATE MOFETIL [Concomitant]
     Route: 065

REACTIONS (2)
  - Skin lesion [Recovering/Resolving]
  - Drug ineffective [Unknown]
